FAERS Safety Report 7400496-7 (Version None)
Quarter: 2011Q2

REPORT INFORMATION
  Report Type: 
  Country: None (occurrence: None)
  Receive Date: 20110407
  Receipt Date: 20110328
  Transmission Date: 20111010
  Serious: Yes (Death)
  Sender: FDA-Public Use
  Company Number: JP-PFIZER INC-2011072839

PATIENT
  Age: 88 Year
  Sex: Female

DRUGS (2)
  1. CELECOX [Suspect]
     Indication: OSTEOARTHRITIS
     Dosage: UNK
     Route: 048
     Dates: start: 20071204, end: 20080304
  2. MOBIC [Concomitant]
     Dosage: UNK
     Route: 048
     Dates: start: 20080319

REACTIONS (1)
  - RENAL CELL CARCINOMA [None]
